FAERS Safety Report 24338622 (Version 1)
Quarter: 2024Q3

REPORT INFORMATION
  Report Type: Spontaneous
  Country: TW (occurrence: TW)
  Receive Date: 20240919
  Receipt Date: 20240919
  Transmission Date: 20241017
  Serious: Yes (Life-Threatening, Hospitalization)
  Sender: MYLAN
  Company Number: TW-MYLANLABS-2024M1084588

PATIENT
  Age: 68 Year
  Sex: Male

DRUGS (2)
  1. METHOTREXATE [Suspect]
     Active Substance: METHOTREXATE
     Indication: Rheumatoid arthritis
     Dosage: 10 MILLIGRAM, QW
     Route: 065
  2. HYDROXYCHLOROQUINE [Concomitant]
     Active Substance: HYDROXYCHLOROQUINE
     Indication: Rheumatoid arthritis
     Dosage: UNK
     Route: 065

REACTIONS (6)
  - Epstein-Barr virus associated lymphoma [Recovering/Resolving]
  - Diffuse large B-cell lymphoma [Recovering/Resolving]
  - Acute respiratory distress syndrome [Recovering/Resolving]
  - Lung consolidation [Recovering/Resolving]
  - Metabolic acidosis [Recovering/Resolving]
  - Pancytopenia [Recovering/Resolving]
